FAERS Safety Report 9293305 (Version 1)
Quarter: 2013Q2

REPORT INFORMATION
  Report Type: Spontaneous
  Country: US (occurrence: US)
  Receive Date: 20130516
  Receipt Date: 20130516
  Transmission Date: 20140414
  Serious: No
  Sender: FDA-Public Use
  Company Number: US-ASTRAZENECA-2013SE30026

PATIENT
  Age: 71 Year
  Sex: Male
  Weight: 75.3 kg

DRUGS (10)
  1. BRILINTA [Suspect]
     Indication: STENT PLACEMENT
     Route: 048
     Dates: start: 201304, end: 20130423
  2. COUMADIN [Concomitant]
     Dosage: UNKNOWN
  3. HEPARIN [Concomitant]
     Dosage: UNKNOWN
  4. LOVENOX [Concomitant]
     Dosage: UNKNOWN
  5. ASPIRIN [Concomitant]
     Route: 048
     Dates: start: 201304
  6. PLETAL [Concomitant]
     Indication: PERIPHERAL ARTERIAL OCCLUSIVE DISEASE
     Route: 048
  7. PRINIVIL [Concomitant]
     Indication: HYPERTENSION
     Route: 048
     Dates: start: 2000
  8. NORVASC [Concomitant]
     Indication: HYPERTENSION
     Route: 048
     Dates: start: 2006
  9. COREG [Concomitant]
     Indication: CARDIAC DISORDER
     Route: 048
  10. FOLIC ACID [Concomitant]
     Indication: ANAEMIA
     Route: 048

REACTIONS (2)
  - Weight decreased [Unknown]
  - Intentional drug misuse [Unknown]
